FAERS Safety Report 16990357 (Version 1)
Quarter: 2019Q4

REPORT INFORMATION
  Report Type: Spontaneous
  Country: US (occurrence: US)
  Receive Date: 20191103
  Receipt Date: 20191103
  Transmission Date: 20200122
  Serious: Yes (Disabling, Other)
  Sender: FDA-Public Use
  Company Number: None

PATIENT
  Age: 47 Year
  Sex: Female
  Weight: 148.5 kg

DRUGS (19)
  1. HYDROCHLOROTHIAZIDE. [Concomitant]
     Active Substance: HYDROCHLOROTHIAZIDE
  2. LEXAPRO [Concomitant]
     Active Substance: ESCITALOPRAM OXALATE
  3. TEST STRIPS [Concomitant]
  4. LANCETS [Concomitant]
     Active Substance: DEVICE
  5. IMIQUIMOD 5% [Suspect]
     Active Substance: IMIQUIMOD
     Indication: VULVOVAGINAL DISORDER
     Dosage: ?          QUANTITY:1 0.25 G PACKET;OTHER FREQUENCY:3 TIMES WEEKLY;?
     Route: 067
     Dates: start: 20190701, end: 20190919
  6. ALLEGRA 24 [Concomitant]
  7. LAMOTRIGINE. [Concomitant]
     Active Substance: LAMOTRIGINE
  8. OXYBUTININ [Concomitant]
     Active Substance: OXYBUTYNIN
  9. CPAP [Concomitant]
     Active Substance: DEVICE
  10. IMIQUIMOD 5% [Suspect]
     Active Substance: IMIQUIMOD
     Indication: VULVAL CANCER
     Dosage: ?          QUANTITY:1 0.25 G PACKET;OTHER FREQUENCY:3 TIMES WEEKLY;?
     Route: 067
     Dates: start: 20190701, end: 20190919
  11. IMIQUIMOD 5% [Suspect]
     Active Substance: IMIQUIMOD
     Indication: VAGINAL CANCER
     Dosage: ?          QUANTITY:1 0.25 G PACKET;OTHER FREQUENCY:3 TIMES WEEKLY;?
     Route: 067
     Dates: start: 20190701, end: 20190919
  12. LOSARTAN. [Concomitant]
     Active Substance: LOSARTAN
  13. VENLAFAXINE ER [Concomitant]
     Active Substance: VENLAFAXINE HYDROCHLORIDE
  14. NORCO [Concomitant]
     Active Substance: ACETAMINOPHEN\HYDROCODONE BITARTRATE
  15. OMEPRAZOLE. [Concomitant]
     Active Substance: OMEPRAZOLE
  16. IMIQUIMOD 5% [Suspect]
     Active Substance: IMIQUIMOD
     Indication: PRECANCEROUS LESION
     Dosage: ?          QUANTITY:1 0.25 G PACKET;OTHER FREQUENCY:3 TIMES WEEKLY;?
     Route: 067
     Dates: start: 20190701, end: 20190919
  17. ALPRAZOLAM. [Concomitant]
     Active Substance: ALPRAZOLAM
  18. BLOOD SUGAR MONITOR [Concomitant]
  19. METFORMIN [Concomitant]
     Active Substance: METFORMIN HYDROCHLORIDE

REACTIONS (9)
  - Incorrect route of product administration [None]
  - Vulval abscess [None]
  - Vulvovaginal discomfort [None]
  - Vulvovaginal pain [None]
  - Off label use [None]
  - Bacterial vaginosis [None]
  - Vulvovaginal swelling [None]
  - Vulvovaginal dryness [None]
  - Infection [None]

NARRATIVE: CASE EVENT DATE: 20190921
